FAERS Safety Report 9886638 (Version 3)
Quarter: 2014Q1

REPORT INFORMATION
  Report Type: Spontaneous
  Country: US (occurrence: US)
  Receive Date: 20140210
  Receipt Date: 20140219
  Transmission Date: 20141002
  Serious: Yes (Other)
  Sender: FDA-Public Use
  Company Number: CHPA2014US002264

PATIENT
  Age: 76 Year
  Sex: Female

DRUGS (4)
  1. TRIAMINIC LONG ACTING COUGH [Suspect]
     Indication: COUGH
     Dosage: 2 TSP, QD
     Route: 048
  2. TRIAMINIC DAY TIME COLD + COUGH [Suspect]
     Indication: COUGH
     Dosage: 2 TSP, QD
     Dates: start: 201401, end: 201401
  3. TRIAMINIC NIGHT TIME COLD + COUGH [Suspect]
     Indication: COUGH
     Dosage: 2 TSP, QD
     Dates: start: 201401, end: 201401
  4. HALLS [Concomitant]
     Indication: COUGH

REACTIONS (9)
  - Lumbar vertebral fracture [Recovered/Resolved]
  - Fall [Recovered/Resolved]
  - Muscle spasms [Recovered/Resolved]
  - Pain in extremity [Recovered/Resolved]
  - Influenza like illness [Recovered/Resolved]
  - Nasopharyngitis [Recovered/Resolved]
  - Cough [Recovered/Resolved]
  - Headache [Recovered/Resolved]
  - Expired drug administered [Unknown]
